FAERS Safety Report 9337586 (Version 2)
Quarter: 2013Q2

REPORT INFORMATION
  Report Type: Spontaneous
  Country: US (occurrence: US)
  Receive Date: 20130607
  Receipt Date: 20130625
  Transmission Date: 20140414
  Serious: No
  Sender: FDA-Public Use
  Company Number: US-009507513-1306USA003617

PATIENT
  Age: 60 Year
  Sex: Female
  Weight: 81.63 kg

DRUGS (13)
  1. CLARITIN [Suspect]
     Indication: SEASONAL ALLERGY
     Dosage: 10 MG, QAM
     Route: 048
     Dates: start: 20130426, end: 20130517
  2. CLARITIN [Suspect]
     Indication: HOUSE DUST ALLERGY
  3. CLARITIN [Suspect]
     Indication: SNEEZING
  4. CLARITIN [Suspect]
     Indication: LACRIMATION INCREASED
  5. IRON (UNSPECIFIED) [Concomitant]
     Indication: ANAEMIA
     Dosage: UNK, UNKNOWN
  6. IRON (UNSPECIFIED) [Concomitant]
     Indication: IRON DEFICIENCY
  7. CYANOCOBALAMIN [Concomitant]
     Indication: ANAEMIA
     Dosage: UNK, UNKNOWN
  8. CYANOCOBALAMIN [Concomitant]
     Indication: IRON DEFICIENCY
  9. EQUATE ESTROBLEND [Concomitant]
     Indication: MENOPAUSE
     Dosage: UNK, UNKNOWN
  10. CHONDROITIN SULFATE SODIUM (+) GLUCOSAMINE SULFATE [Concomitant]
     Indication: ARTHRITIS
     Dosage: UNK, UNKNOWN
  11. CHONDROITIN SULFATE SODIUM (+) GLUCOSAMINE SULFATE [Concomitant]
     Indication: ARTHRALGIA
  12. ALEVE [Concomitant]
     Indication: ARTHRITIS
     Dosage: UNK, UNKNOWN
  13. ALEVE [Concomitant]
     Indication: PAIN

REACTIONS (1)
  - Drug ineffective [Unknown]
